FAERS Safety Report 7739871-X (Version None)
Quarter: 2011Q3

REPORT INFORMATION
  Report Type: 
  Country: None (occurrence: None)
  Receive Date: 20110909
  Receipt Date: 20110902
  Transmission Date: 20111222
  Serious: Yes (Other)
  Sender: FDA-Public Use
  Company Number: PHHY2011VE79491

PATIENT
  Sex: Female

DRUGS (4)
  1. MEMANTINE HYDROCHLORIDE [Concomitant]
     Dosage: TWICE A DAY
  2. ZOLEDRONOC ACID [Suspect]
     Indication: OSTEOPOROSIS
     Dosage: 5 MG ONCE A YEAR
     Route: 042
     Dates: start: 20090101
  3. RISPERIN [Concomitant]
     Dosage: 2 DRP, UNK
  4. EZENTIUS [Concomitant]
     Dosage: 10 MG, UNK

REACTIONS (1)
  - DEPRESSION [None]
